FAERS Safety Report 10615936 (Version 19)
Quarter: 2015Q2

REPORT INFORMATION
  Report Type: Report from Study
  Country: FR (occurrence: FR)
  Receive Date: 20141201
  Receipt Date: 20150417
  Transmission Date: 20150821
  Serious: Yes (Other)
  Sender: FDA-Public Use
  Company Number: FR-SA-2014SA145909

PATIENT
  Age: 73 Year
  Sex: Male

DRUGS (1)
  1. CABAZITAXEL [Suspect]
     Active Substance: CABAZITAXEL
     Route: 065

REACTIONS (15)
  - Herpes ophthalmic [Recovered/Resolved]
  - Muscle spasms [Unknown]
  - Diarrhoea [Recovering/Resolving]
  - Chest discomfort [Unknown]
  - Epistaxis [Unknown]
  - Oedema peripheral [Not Recovered/Not Resolved]
  - Onychomadesis [Unknown]
  - Back pain [Recovering/Resolving]
  - Lacrimation increased [Not Recovered/Not Resolved]
  - Dyspnoea exertional [Recovering/Resolving]
  - Ageusia [Unknown]
  - Nasal dryness [Unknown]
  - Fatigue [Recovered/Resolved]
  - Decreased appetite [Not Recovered/Not Resolved]
  - Peripheral sensory neuropathy [Unknown]

NARRATIVE: CASE EVENT DATE: 20131103
